FAERS Safety Report 7290645-6 (Version None)
Quarter: 2011Q1

REPORT INFORMATION
  Report Type: 
  Country: None (occurrence: None)
  Receive Date: 20110214
  Receipt Date: 20110209
  Transmission Date: 20110831
  Serious: Yes (Disabling)
  Sender: FDA-Public Use
  Company Number: GB-PFIZER INC-2011029955

PATIENT
  Age: 42 Year
  Sex: Female
  Weight: 58 kg

DRUGS (1)
  1. CHAMPIX [Suspect]
     Indication: SMOKING CESSATION THERAPY
     Dosage: UNK MG, UNK
     Route: 048
     Dates: start: 20110121, end: 20110127

REACTIONS (8)
  - THINKING ABNORMAL [None]
  - DEPRESSED MOOD [None]
  - AMNESIA [None]
  - PSYCHOTIC DISORDER [None]
  - AGGRESSION [None]
  - MOOD ALTERED [None]
  - TEARFULNESS [None]
  - SELF-INJURIOUS IDEATION [None]
